FAERS Safety Report 6655772-2 (Version None)
Quarter: 2010Q1

REPORT INFORMATION
  Report Type: 
  Country: None (occurrence: None)
  Receive Date: 20100317
  Receipt Date: 20091228
  Transmission Date: 20100710
  Serious: No
  Sender: FDA-Public Use
  Company Number: DSA_42259_2009

PATIENT
  Sex: Female

DRUGS (4)
  1. XENAZINE [Suspect]
     Indication: HUNTINGTON'S CHOREA
     Dosage: 12.5 MG TID ORAL, DF ORAL, 25 MG TID ORAL
     Route: 048
     Dates: start: 20090716, end: 20090101
  2. XENAZINE [Suspect]
     Indication: HUNTINGTON'S CHOREA
     Dosage: 12.5 MG TID ORAL, DF ORAL, 25 MG TID ORAL
     Route: 048
     Dates: start: 20091116, end: 20090101
  3. XENAZINE [Suspect]
     Indication: HUNTINGTON'S CHOREA
     Dosage: 12.5 MG TID ORAL, DF ORAL, 25 MG TID ORAL
     Route: 048
     Dates: start: 20091123, end: 20091204
  4. ANTIDEPRESSANTS [Concomitant]

REACTIONS (3)
  - CONDITION AGGRAVATED [None]
  - DYSKINESIA [None]
  - INSOMNIA [None]
